FAERS Safety Report 8219225-2 (Version None)
Quarter: 2012Q1

REPORT INFORMATION
  Report Type: 
  Country: None (occurrence: None)
  Receive Date: 20120319
  Receipt Date: 20120308
  Transmission Date: 20120608
  Serious: Yes (Hospitalization)
  Sender: FDA-Public Use
  Company Number: US-JNJFOC-20120210215

PATIENT
  Sex: Male
  Weight: 37.2 kg

DRUGS (16)
  1. PRILOSEC [Concomitant]
  2. REMICADE [Suspect]
     Indication: INFLAMMATORY BOWEL DISEASE
     Route: 042
     Dates: start: 20100823, end: 20110820
  3. CIMZIA [Concomitant]
     Dates: start: 20120201
  4. CELEXA [Concomitant]
  5. VITAMIN D [Concomitant]
  6. MULTIVITAMIN [Concomitant]
  7. BENADRYL [Concomitant]
  8. KENALOG [Concomitant]
  9. ZOFRAN [Concomitant]
  10. LIDEX [Concomitant]
  11. PREDNISONE [Concomitant]
  12. CIMZIA [Concomitant]
     Indication: INFLAMMATORY BOWEL DISEASE
     Dosage: LAST DOSE THAT WAS INITIATED WAS ON 01-FEB-2012
  13. CIMZIA [Concomitant]
     Dosage: LAST DOSE THAT WAS INITIATED WAS ON 01-FEB-2012
     Dates: start: 20111111
  14. ANTIBIOTICS [Concomitant]
     Indication: INFLAMMATORY BOWEL DISEASE
  15. ATIVAN [Concomitant]
  16. TYLENOL [Concomitant]

REACTIONS (1)
  - APPLICATION SITE DERMATITIS [None]
